FAERS Safety Report 9845363 (Version 1)
Quarter: 2014Q1

REPORT INFORMATION
  Report Type: Spontaneous
  Country: US (occurrence: None)
  Receive Date: 20140123
  Receipt Date: 20140123
  Transmission Date: 20141002
  Serious: Yes (Other)
  Sender: FDA-Public Use
  Company Number: US-RED-14-00007

PATIENT
  Age: 58 Year
  Sex: Male

DRUGS (1)
  1. DESOXYN [Suspect]
     Indication: ATTENTION DEFICIT/HYPERACTIVITY DISORDER
     Dosage: 10 MG 95 MG, 2 IN 1 D), UNKNOWN
     Dates: start: 2013

REACTIONS (2)
  - Incorrect dose administered [None]
  - Drug ineffective [None]
